FAERS Safety Report 13166010 (Version 1)
Quarter: 2017Q1

REPORT INFORMATION
  Report Type: Spontaneous
  Country: US (occurrence: US)
  Receive Date: 20170131
  Receipt Date: 20170131
  Transmission Date: 20170428
  Serious: No
  Sender: FDA-Public Use
  Company Number: US-SUN PHARMACEUTICAL INDUSTRIES LTD-2016US-123003

PATIENT
  Sex: Male

DRUGS (1)
  1. PHENYTOIN. [Suspect]
     Active Substance: PHENYTOIN
     Indication: PRODUCT USED FOR UNKNOWN INDICATION
     Dosage: UNK
     Route: 065
     Dates: start: 201601, end: 2016

REACTIONS (5)
  - Product quality issue [Unknown]
  - Compulsive cheek biting [Unknown]
  - Drug level decreased [Recovered/Resolved]
  - Product substitution issue [Unknown]
  - Compulsive lip biting [Unknown]

NARRATIVE: CASE EVENT DATE: 2016
